FAERS Safety Report 8164382-X (Version None)
Quarter: 2012Q1

REPORT INFORMATION
  Report Type: 
  Country: None (occurrence: None)
  Receive Date: 20120224
  Receipt Date: 20120125
  Transmission Date: 20120608
  Serious: Yes (Hospitalization, Other)
  Sender: FDA-Public Use
  Company Number: FR-PFIZER INC-K201100587

PATIENT
  Age: 72 Year
  Sex: Female

DRUGS (6)
  1. CLONAZEPAM [Suspect]
     Dosage: UNK
     Route: 048
     Dates: start: 20101208, end: 20101208
  2. OMEPRAZOLE [Suspect]
     Dosage: UNK
     Route: 048
     Dates: start: 20101208, end: 20101208
  3. RAMIPRIL [Suspect]
     Dosage: UNK
     Route: 048
     Dates: start: 20101208, end: 20101208
  4. NEBIVOLOL [Suspect]
     Dosage: UNK
     Route: 048
     Dates: start: 20101208, end: 20101208
  5. HYDROCHLOROTHIAZIDE [Suspect]
     Dosage: UNK
     Route: 048
     Dates: start: 20101208, end: 20101208
  6. ACETAMINOPHEN AND TRAMADOL HCL [Suspect]
     Dosage: UNK
     Route: 048
     Dates: start: 20101208, end: 20101208

REACTIONS (6)
  - SOMNOLENCE [None]
  - INTENTIONAL OVERDOSE [None]
  - BRADYCARDIA [None]
  - RHABDOMYOLYSIS [None]
  - HEPATITIS [None]
  - RENAL FAILURE ACUTE [None]
